FAERS Safety Report 5389448-9 (Version None)
Quarter: 2007Q3

REPORT INFORMATION
  Report Type: 
  Country: None (occurrence: None)
  Receive Date: 20070717
  Receipt Date: 20070709
  Transmission Date: 20080115
  Serious: Yes (Other)
  Sender: FDA-Public Use
  Company Number: GB-BRISTOL-MYERS SQUIBB COMPANY-13847538

PATIENT
  Sex: Female

DRUGS (2)
  1. CYCLOPHOSPHAMIDE [Suspect]
  2. FLUDARA [Suspect]

REACTIONS (1)
  - HAEMOLYSIS [None]
